FAERS Safety Report 4423849-8 (Version None)
Quarter: 2004Q3

REPORT INFORMATION
  Report Type: 
  Country: None (occurrence: None)
  Receive Date: 20040714
  Receipt Date: 20031003
  Transmission Date: 20050211
  Serious: Yes (Death)
  Sender: FDA-Public Use
  Company Number: 200318755US

PATIENT

DRUGS (1)
  1. TAXOTERE [Suspect]

REACTIONS (1)
  - DEATH [None]
